FAERS Safety Report 22527588 (Version 4)
Quarter: 2023Q4

REPORT INFORMATION
  Report Type: Report from Study
  Country: CN (occurrence: CN)
  Receive Date: 20230606
  Receipt Date: 20231227
  Transmission Date: 20240109
  Serious: Yes (Hospitalization)
  Sender: FDA-Public Use
  Company Number: CN-002147023-NVSC2023CN127383

PATIENT
  Age: 33 Year
  Sex: Male
  Weight: 75 kg

DRUGS (3)
  1. COSENTYX [Suspect]
     Active Substance: SECUKINUMAB
     Indication: Psoriasis
     Dosage: 300 MG
     Route: 058
     Dates: start: 20230327
  2. COSENTYX [Suspect]
     Active Substance: SECUKINUMAB
     Dosage: 300 MG
     Route: 058
     Dates: start: 20230420
  3. COSENTYX [Suspect]
     Active Substance: SECUKINUMAB
     Dosage: UNK
     Route: 065
     Dates: end: 20230928

REACTIONS (4)
  - Appendicitis [Recovered/Resolved]
  - Abdominal pain lower [Recovering/Resolving]
  - Diarrhoea [Recovering/Resolving]
  - Appendicolith [Unknown]

NARRATIVE: CASE EVENT DATE: 20230527
